FAERS Safety Report 5934072-X (Version None)
Quarter: 2008Q4

REPORT INFORMATION
  Report Type: 
  Country: None (occurrence: None)
  Receive Date: 20081029
  Receipt Date: 20081022
  Transmission Date: 20090506
  Serious: Yes (Life-Threatening)
  Sender: FDA-Public Use
  Company Number: JP-MERCK-0810USA01348

PATIENT
  Age: 15 Year
  Sex: Female
  Weight: 44 kg

DRUGS (5)
  1. SINGULAIR [Suspect]
     Indication: NASAL CONGESTION
     Route: 048
     Dates: start: 20081006, end: 20081007
  2. SINGULAIR [Suspect]
     Indication: RHINITIS ALLERGIC
     Route: 048
     Dates: start: 20081006, end: 20081007
  3. ZADITEN [Concomitant]
     Indication: RHINITIS ALLERGIC
     Route: 048
     Dates: start: 20081006
  4. DASEN [Concomitant]
     Indication: RHINITIS ALLERGIC
     Route: 048
     Dates: start: 20081006
  5. MUCODYNE [Concomitant]
     Indication: RHINITIS ALLERGIC
     Route: 048
     Dates: start: 20081006

REACTIONS (3)
  - DYSPNOEA [None]
  - NAUSEA [None]
  - OVERDOSE [None]
